FAERS Safety Report 8106722 (Version 4)
Quarter: 2015Q1

REPORT INFORMATION
  Report Type: Spontaneous
  Country: US (occurrence: US)
  Receive Date: 20110825
  Receipt Date: 20150205
  Transmission Date: 20150721
  Serious: Yes (Hospitalization, Other)
  Sender: FDA-Public Use
  Company Number: US-BAYER-2011-010336

PATIENT
  Age: 37 Year
  Sex: Female
  Weight: 77.98 kg

DRUGS (3)
  1. SERTRALINE [Concomitant]
     Active Substance: SERTRALINE HYDROCHLORIDE
     Indication: DEPRESSION
     Dosage: UNK
     Dates: start: 2002
  2. MIRENA [Suspect]
     Active Substance: LEVONORGESTREL
     Indication: CONTRACEPTION
     Dosage: 20 MCG/24HR, CONT
     Route: 015
     Dates: start: 20110114, end: 20110202
  3. ZOLOFT [Concomitant]
     Active Substance: SERTRALINE HYDROCHLORIDE
     Dosage: 50 MG, UNK

REACTIONS (9)
  - Medical device discomfort [None]
  - Injury [None]
  - Uterine perforation [None]
  - Procedural pain [None]
  - Device issue [None]
  - Pelvic pain [None]
  - Abdominal pain lower [None]
  - Device dislocation [None]
  - Back pain [None]

NARRATIVE: CASE EVENT DATE: 20110114
